FAERS Safety Report 25942103 (Version 1)
Quarter: 2025Q4

REPORT INFORMATION
  Report Type: Report from Study
  Country: EU (occurrence: EU)
  Receive Date: 20251020
  Receipt Date: 20251020
  Transmission Date: 20260118
  Serious: Yes (Other)
  Sender: PURDUE
  Company Number: EU-PURDUE-USA-2025-0321472

PATIENT
  Age: 76 Year
  Sex: Female
  Weight: 77 kg

DRUGS (7)
  1. MORPHINE SULFATE [Suspect]
     Active Substance: MORPHINE SULFATE
     Indication: Pain
     Dosage: 1 DF, QD
     Route: 042
     Dates: start: 20231017, end: 20231025
  2. MORPHINE SULFATE [Suspect]
     Active Substance: MORPHINE SULFATE
     Indication: Pain
     Dosage: 1 DOSAGE FORM
     Route: 042
     Dates: start: 20231017, end: 20231025
  3. IOMERON [Suspect]
     Active Substance: IOMEPROL
     Indication: Computerised tomogram
     Dosage: 1 DF, SINGLE
     Route: 042
     Dates: start: 20231015, end: 20231015
  4. METRONIDAZOLE [Suspect]
     Active Substance: METRONIDAZOLE
     Indication: Pneumonia aspiration
     Dosage: 1.5 G, QD
     Route: 042
     Dates: start: 20231015, end: 20231021
  5. CEFOTAXIME SODIUM [Suspect]
     Active Substance: CEFOTAXIME SODIUM
     Indication: Pneumonia aspiration
     Dosage: 6 G, QD
     Route: 042
     Dates: start: 20231015, end: 20231021
  6. VISIPAQUE [Suspect]
     Active Substance: IODIXANOL
     Indication: Computerised tomogram
     Dosage: 1 DF, SINGLE
     Route: 042
     Dates: start: 20231015, end: 20231015
  7. NIMOTOP [Suspect]
     Active Substance: NIMODIPINE
     Indication: Subarachnoid haemorrhage
     Dosage: 1 DF, QD
     Route: 042
     Dates: start: 20231018, end: 20231026

REACTIONS (1)
  - Rash maculo-papular [Recovered/Resolved]

NARRATIVE: CASE EVENT DATE: 20231021
